FAERS Safety Report 4286282-8 (Version None)
Quarter: 2004Q1

REPORT INFORMATION
  Report Type: 
  Country: None (occurrence: None)
  Receive Date: 20040115
  Receipt Date: 20021126
  Transmission Date: 20041129
  Serious: Yes (Hospitalization, Other)
  Sender: FDA-Public Use
  Company Number: NSADSS2002043407

PATIENT
  Age: 40 Year
  Sex: Male
  Weight: 62.5964 kg

DRUGS (8)
  1. DOXIL [Suspect]
     Indication: KAPOSI'S SARCOMA
     Dosage: 40 MG, 1 IN 2 WEEK, INTRAVENOUS DRIP
     Route: 041
     Dates: start: 20021107, end: 20021121
  2. DIFLUCAN [Concomitant]
  3. VIREAD () IDOXURIDINE [Concomitant]
  4. PREDNISONE (TABLETS) PREDNISONE [Concomitant]
  5. XANAX [Concomitant]
  6. OXYCONTIN (OXYCODONE HYDROCHLORIDE) TABLETS [Concomitant]
  7. COMPAZINE [Concomitant]
  8. COUMADIN [Concomitant]

REACTIONS (1)
  - PALMAR-PLANTAR ERYTHRODYSAESTHESIA SYNDROME [None]
